FAERS Safety Report 5338555-5 (Version None)
Quarter: 2007Q2

REPORT INFORMATION
  Report Type: 
  Country: None (occurrence: None)
  Receive Date: 20070530
  Receipt Date: 20070523
  Transmission Date: 20071010
  Serious: Yes (Hospitalization)
  Sender: FDA-Public Use
  Company Number: JP-AVENTIS-200711359JP

PATIENT
  Age: 55 Year
  Sex: Female

DRUGS (2)
  1. INSULIN [Suspect]
     Route: 058
  2. INSULIN ASPART [Concomitant]
     Route: 058

REACTIONS (1)
  - HEPATIC FUNCTION ABNORMAL [None]
